FAERS Safety Report 10096969 (Version 2)
Quarter: 2014Q2

REPORT INFORMATION
  Report Type: Spontaneous
  Country: US (occurrence: US)
  Receive Date: 20140422
  Receipt Date: 20140422
  Transmission Date: 20141212
  Serious: Yes (Hospitalization)
  Sender: FDA-Public Use
  Company Number: US-GILEAD-2012-0063113

PATIENT
  Age: 68 Year
  Sex: Female

DRUGS (11)
  1. LETAIRIS [Suspect]
     Indication: PULMONARY ARTERIAL HYPERTENSION
     Dosage: 10 MG, QD
     Route: 048
     Dates: start: 201209
  2. LETAIRIS [Suspect]
     Indication: PULMONARY ARTERIAL HYPERTENSION
     Dosage: 5 MG, QD
     Route: 048
     Dates: start: 201207, end: 201209
  3. DIGOXIN [Concomitant]
  4. NOVOLOG [Concomitant]
  5. AMBIEN [Concomitant]
  6. DILTIAZEM [Concomitant]
  7. PRAVASTATIN [Concomitant]
     Dosage: 20 MG, UNK
  8. LISINOPRIL [Concomitant]
  9. FUROSEMIDE [Concomitant]
  10. ZEBETA [Concomitant]
     Dosage: UNK
  11. GABAPENTIN [Concomitant]

REACTIONS (5)
  - Fluid overload [Unknown]
  - Yellow skin [Unknown]
  - Peripheral swelling [Not Recovered/Not Resolved]
  - Dyspnoea [Unknown]
  - Weight increased [Unknown]
